FAERS Safety Report 15144963 (Version 1)
Quarter: 2018Q3

REPORT INFORMATION
  Report Type: Spontaneous
  Country: AU (occurrence: AU)
  Receive Date: 20180713
  Receipt Date: 20180713
  Transmission Date: 20181010
  Serious: Yes (Other)
  Sender: FDA-Public Use
  Company Number: AU-SA-2018SA178832

PATIENT
  Age: 29 Year
  Sex: Male

DRUGS (1)
  1. ALEMTUZUMAB [Suspect]
     Active Substance: ALEMTUZUMAB
     Indication: RELAPSING-REMITTING MULTIPLE SCLEROSIS
     Dosage: UNK UNK, UNK
     Route: 041

REACTIONS (7)
  - Chest discomfort [Unknown]
  - Cholecystitis [Recovered/Resolved]
  - Interstitial lung disease [Unknown]
  - Liver palpable [Recovered/Resolved]
  - Hepatic enzyme abnormal [Recovered/Resolved]
  - Haemoptysis [Recovered/Resolved]
  - Murphy^s sign positive [Recovered/Resolved]
